FAERS Safety Report 18793484 (Version 1)
Quarter: 2021Q1

REPORT INFORMATION
  Report Type: Spontaneous
  Country: US (occurrence: US)
  Receive Date: 20210120
  Receipt Date: 20210120
  Transmission Date: 20210419
  Serious: No
  Sender: FDA-Public Use
  Company Number: US-BIOVITRUM-2021US0464

PATIENT
  Sex: Male
  Weight: 8.57 kg

DRUGS (3)
  1. SYNAGIS [Suspect]
     Active Substance: PALIVIZUMAB
     Indication: CONGENITAL CENTRAL NERVOUS SYSTEM ANOMALY
  2. SYNAGIS [Suspect]
     Active Substance: PALIVIZUMAB
     Indication: SKULL MALFORMATION
     Route: 030
     Dates: start: 20201207
  3. SYNAGIS [Suspect]
     Active Substance: PALIVIZUMAB
     Indication: SLEEP APNOEA SYNDROME

REACTIONS (2)
  - Malaise [Unknown]
  - Off label use [Unknown]
